FAERS Safety Report 9913394 (Version 2)
Quarter: 2014Q1

REPORT INFORMATION
  Report Type: Spontaneous
  Country: CN (occurrence: CN)
  Receive Date: 20140220
  Receipt Date: 20140220
  Transmission Date: 20141002
  Serious: Yes (Other)
  Sender: FDA-Public Use
  Company Number: CN-JNJFOC-20121201667

PATIENT
  Age: 30 Year
  Sex: Female

DRUGS (3)
  1. TOPAMAX [Suspect]
     Indication: EPILEPSY
     Route: 048
  2. TOPAMAX [Suspect]
     Indication: EPILEPSY
     Dosage: 200 MG IN MORNING AND 300 MG IN EVENING
     Route: 048
  3. TOPAMAX [Suspect]
     Indication: EPILEPSY
     Route: 048

REACTIONS (4)
  - Epilepsy [Unknown]
  - Abortion spontaneous [Recovered/Resolved]
  - Nasopharyngitis [Recovered/Resolved]
  - Exposure during pregnancy [Recovered/Resolved]
